FAERS Safety Report 8764977 (Version 1)
Quarter: 2012Q4

REPORT INFORMATION
  Report Type: 
  Country: NO (occurrence: NO)
  Receive Date: 20120902
  Receipt Date: 20120902
  Transmission Date: 20130627
  Serious: Yes (Hospitalization)
  Sender: FDA-Public Use
  Company Number: NO-AMGEN-NORSP2012054369

PATIENT
  Age: 38 Year
  Sex: Female

DRUGS (10)
  1. ENBREL [Suspect]
     Indication: PSORIATIC ARTHROPATHY
     Dosage: 50 mg, UNK
     Route: 058
     Dates: start: 20110928, end: 20111005
  2. PNEUMOVAX [Suspect]
     Dosage: UNK
     Dates: start: 20111005
  3. SALAZOPYRIN [Concomitant]
     Dosage: 1000 mg, bid
  4. METFORMIN [Concomitant]
     Dosage: 500 mg, bid
  5. METEX                              /00082702/ [Concomitant]
     Dosage: Last dose before: 02Oct2011
     Route: 058
  6. NAPROXEN [Concomitant]
     Dosage: 500 mg, bid
     Route: 048
  7. YASMIN [Concomitant]
     Dosage: UNK
     Route: 048
  8. SOMAC [Concomitant]
     Route: 048
  9. PARALGIN FORTE                     /00116401/ [Concomitant]
     Dosage: As needed
     Route: 048
  10. CALCIGRAN FORTE [Concomitant]
     Dosage: 1 g, qd
     Route: 048

REACTIONS (1)
  - Rash generalised [Recovered/Resolved]
